FAERS Safety Report 20789311 (Version 1)
Quarter: 2022Q2

REPORT INFORMATION
  Report Type: Spontaneous
  Country: US (occurrence: None)
  Receive Date: 20220504
  Receipt Date: 20220504
  Transmission Date: 20220720
  Serious: Yes (Hospitalization)
  Sender: FDA-Public Use
  Company Number: None

PATIENT
  Age: 62 Year
  Sex: Male

DRUGS (22)
  1. CLOZAPINE [Suspect]
     Active Substance: CLOZAPINE
     Indication: Schizoaffective disorder
     Dosage: FREQUENCY : DAILY;?
     Route: 048
     Dates: start: 20220327, end: 20220410
  2. Acetaminophen 325mg Tab [Concomitant]
     Dates: start: 20220320, end: 20220410
  3. Maalox Oral Suspension [Concomitant]
     Dates: start: 20220320, end: 20220410
  4. ELIQUIS [Concomitant]
     Active Substance: APIXABAN
     Dates: start: 20220315, end: 20220410
  5. Bisacodyl 10mgTab [Concomitant]
     Dates: start: 20220320, end: 20220410
  6. Lotrimin 1% Cream [Concomitant]
     Dates: start: 20220315, end: 20220410
  7. Clozapine 12.5mg Tab [Concomitant]
     Dates: start: 20220324, end: 20220326
  8. Clozapine 25mg Tab [Concomitant]
     Dates: start: 20220327, end: 20220328
  9. Clozapine 50mg Tab [Concomitant]
     Dates: start: 20220329, end: 20220330
  10. Clozapine 75mg Tab [Concomitant]
     Dates: start: 20220331, end: 20220407
  11. Clozapine 100mg Tab [Concomitant]
     Dates: start: 20220408, end: 20220410
  12. Digoxin 125mcg Tab [Concomitant]
     Dates: start: 20220316, end: 20220410
  13. Depakote ER 1000mg Tab [Concomitant]
     Dates: start: 20220407, end: 20220410
  14. Depakote ER 1500mg Tab [Concomitant]
     Dates: start: 20220315, end: 20220406
  15. Docusate 100mg Cap [Concomitant]
     Dates: start: 20220315, end: 20220410
  16. Haloperidol 5mg Tab [Concomitant]
     Dates: start: 20220315, end: 20220410
  17. LORAZEPAM [Concomitant]
     Active Substance: LORAZEPAM
     Dates: start: 20220315, end: 20220404
  18. METFORMIN [Concomitant]
     Active Substance: METFORMIN HYDROCHLORIDE
     Dates: start: 20220315, end: 20220410
  19. Metoprolol XL 100mg Tab [Concomitant]
     Dates: start: 20220316, end: 20220410
  20. Risperidone 1mg Tab [Concomitant]
     Dates: start: 20220316, end: 20220410
  21. Risperidone 2mg Tab [Concomitant]
     Dates: start: 20220315, end: 20220407
  22. Risperidone 3mg Tab [Concomitant]
     Dates: start: 20220323, end: 20220324

REACTIONS (7)
  - Myocarditis [None]
  - Myositis [None]
  - Liver disorder [None]
  - Renal disorder [None]
  - Mental status changes [None]
  - Infection [None]
  - Ill-defined disorder [None]

NARRATIVE: CASE EVENT DATE: 20220410
